FAERS Safety Report 19209921 (Version 1)
Quarter: 2021Q2

REPORT INFORMATION
  Report Type: Spontaneous
  Country: US (occurrence: US)
  Receive Date: 20210504
  Receipt Date: 20210504
  Transmission Date: 20210717
  Serious: No
  Sender: FDA-Public Use
  Company Number: US-009507513-2104USA008866

PATIENT
  Age: 79 Year
  Sex: Male

DRUGS (1)
  1. STROMECTOL [Suspect]
     Active Substance: IVERMECTIN
     Indication: DISSEMINATED STRONGYLOIDIASIS
     Dosage: UNK
     Route: 048

REACTIONS (1)
  - Off label use [Unknown]
